FAERS Safety Report 10040309 (Version 2)
Quarter: 2014Q1

REPORT INFORMATION
  Report Type: Spontaneous
  Country: US (occurrence: US)
  Receive Date: 20140327
  Receipt Date: 20140327
  Transmission Date: 20141002
  Serious: Yes (Hospitalization)
  Sender: FDA-Public Use
  Company Number: US-B.I. PHARMACEUTICALS,INC./RIDGEFIELD-2013-BI-28908BP

PATIENT
  Age: 79 Year
  Sex: Female
  Weight: 103.42 kg

DRUGS (8)
  1. PRADAXA [Suspect]
     Indication: ATRIAL FIBRILLATION
     Dosage: 300 MG
     Route: 065
     Dates: start: 20110523, end: 20121204
  2. CARDIZEM CD [Concomitant]
     Dosage: 360 MG
     Route: 065
  3. DIABETA [Concomitant]
     Dosage: 5 MG
     Route: 065
  4. ZESTRIL [Concomitant]
     Dosage: 40 MG
     Route: 065
  5. MEVACOR [Concomitant]
     Dosage: 20 MG
     Route: 065
  6. PAXIL [Concomitant]
     Dosage: 20 MG
     Route: 065
  7. K-DUR [Concomitant]
     Dosage: 20 MEQ
     Route: 065
  8. DEMADEX [Concomitant]
     Dosage: 20 MG
     Route: 065

REACTIONS (3)
  - Lower gastrointestinal haemorrhage [Unknown]
  - Iron deficiency anaemia [Unknown]
  - Coagulopathy [Unknown]
